FAERS Safety Report 14337764 (Version 4)
Quarter: 2018Q1

REPORT INFORMATION
  Report Type: Spontaneous
  Country: NL (occurrence: NL)
  Receive Date: 20171229
  Receipt Date: 20180313
  Transmission Date: 20180509
  Serious: Yes (Hospitalization, Other)
  Sender: FDA-Public Use
  Company Number: NL-PFIZER INC-2017554339

PATIENT
  Age: 58 Year
  Sex: Male
  Weight: 109.1 kg

DRUGS (11)
  1. ALPRAZOLAM. [Concomitant]
     Active Substance: ALPRAZOLAM
     Dosage: 0.5 MG, UNK
     Dates: start: 20140520
  2. SIMVASTATIN. [Concomitant]
     Active Substance: SIMVASTATIN
     Dosage: 40 MG, UNK
     Dates: start: 20140423
  3. HYDROXYZINE [Concomitant]
     Active Substance: HYDROXYZINE HYDROCHLORIDE
     Dosage: 100 MG, UNK
     Dates: start: 20170405
  4. MACROGOL [Concomitant]
     Active Substance: POLYETHYLENE GLYCOLS
     Dosage: 1 DF, UNK
     Dates: start: 20160401
  5. PAROXETINE. [Concomitant]
     Active Substance: PAROXETINE
     Dosage: 40 MG, UNK
     Dates: start: 20140515
  6. IBUPROFEN. [Suspect]
     Active Substance: IBUPROFEN
     Dosage: 200 MG, UNK
     Dates: start: 20160401
  7. BACITRACINE [Concomitant]
     Active Substance: BACITRACIN
     Dosage: 6 GTT, UNK
  8. BETAHISTINE [Concomitant]
     Active Substance: BETAHISTINE
     Dosage: 32 MG, UNK
     Dates: start: 20160406
  9. OFLOXACINE [Concomitant]
     Active Substance: OFLOXACIN
     Dosage: 4 GTT, UNK
     Dates: start: 20170405
  10. METOPROLOL. [Concomitant]
     Active Substance: METOPROLOL
     Dosage: 100 MG, UNK
     Dates: start: 20160406
  11. ESOMEPRAZOLE [Concomitant]
     Active Substance: ESOMEPRAZOLE
     Dosage: 20 MG, UNK
     Dates: start: 20160330

REACTIONS (2)
  - Acute kidney injury [Recovered/Resolved]
  - Hyperkalaemia [Unknown]

NARRATIVE: CASE EVENT DATE: 20171203
